FAERS Safety Report 16071232 (Version 2)
Quarter: 2019Q4

REPORT INFORMATION
  Report Type: Spontaneous
  Country: US (occurrence: US)
  Receive Date: 20190314
  Receipt Date: 20191213
  Transmission Date: 20200122
  Serious: No
  Sender: FDA-Public Use
  Company Number: US-PFIZER INC-2019106181

PATIENT
  Age: 58 Year
  Sex: Male

DRUGS (1)
  1. XELJANZ XR [Suspect]
     Active Substance: TOFACITINIB CITRATE
     Indication: RHEUMATOID ARTHRITIS
     Dosage: 11 MG, DAILY
     Route: 048

REACTIONS (5)
  - Drug ineffective [Unknown]
  - Increased tendency to bruise [Unknown]
  - White blood cell count decreased [Unknown]
  - Pain [Unknown]
  - Sensitivity to weather change [Unknown]
